FAERS Safety Report 10042670 (Version 1)
Quarter: 2014Q1

REPORT INFORMATION
  Report Type: Report from Study
  Country: AR (occurrence: AR)
  Receive Date: 20140327
  Receipt Date: 20140327
  Transmission Date: 20141002
  Serious: Yes (Other)
  Sender: FDA-Public Use
  Company Number: PHHY2014AR037336

PATIENT
  Sex: Female
  Weight: 44 kg

DRUGS (2)
  1. DIOVAN [Suspect]
     Indication: CARDIAC DISORDER
     Dosage: 320 MG, DAILY
     Route: 048
  2. VACCINES [Suspect]
     Dosage: UNK UKN, UNK

REACTIONS (4)
  - Cataract [Unknown]
  - Maculopathy [Unknown]
  - Rickets [Unknown]
  - Weight decreased [Unknown]
